FAERS Safety Report 26105531 (Version 1)
Quarter: 2025Q4

REPORT INFORMATION
  Report Type: Report from Study
  Country: EU (occurrence: EU)
  Receive Date: 20251201
  Receipt Date: 20251201
  Transmission Date: 20260117
  Serious: Yes (Other)
  Sender: AVERITAS
  Company Number: EU-GRUNENTHAL-2025-125539

PATIENT
  Age: 47 Year
  Sex: Female

DRUGS (1)
  1. QUTENZA [Suspect]
     Active Substance: CAPSAICIN
     Indication: Complex regional pain syndrome
     Dosage: 1 DOSAGE FORM, ONCE
     Route: 003
     Dates: start: 20251112, end: 20251112

REACTIONS (4)
  - Pain in extremity [Not Recovered/Not Resolved]
  - Application site pain [Recovered/Resolved]
  - Haematoma [Recovered/Resolved]
  - Inflammation [Recovered/Resolved]

NARRATIVE: CASE EVENT DATE: 20251112
